FAERS Safety Report 10243116 (Version 2)
Quarter: 2014Q2

REPORT INFORMATION
  Report Type: Spontaneous
  Country: US (occurrence: US)
  Receive Date: 20140618
  Receipt Date: 20140618
  Transmission Date: 20141212
  Serious: No
  Sender: FDA-Public Use
  Company Number: US-ASTRAZENECA-2006UW02815

PATIENT
  Age: 57 Year
  Sex: Male
  Weight: 89.4 kg

DRUGS (4)
  1. NEXIUM [Suspect]
     Indication: ULCER
     Route: 048
     Dates: start: 2008, end: 201402
  2. NEXIUM [Suspect]
     Indication: GASTROOESOPHAGEAL REFLUX DISEASE
     Route: 048
     Dates: start: 2008, end: 201402
  3. SYMBICORT [Suspect]
     Indication: CHRONIC OBSTRUCTIVE PULMONARY DISEASE
     Dosage: 160/4.5 MCG, ONE PUFF, BID
     Route: 055
  4. CARAFATE [Concomitant]

REACTIONS (5)
  - Gastric disorder [Unknown]
  - Epigastric discomfort [Unknown]
  - Respiratory tract infection [Unknown]
  - Hypertension [Unknown]
  - Intentional product misuse [Not Recovered/Not Resolved]
